FAERS Safety Report 15323142 (Version 2)
Quarter: 2018Q4

REPORT INFORMATION
  Report Type: Report from Study
  Country: US (occurrence: US)
  Receive Date: 20180827
  Receipt Date: 20181119
  Transmission Date: 20190204
  Serious: Yes (Death)
  Sender: FDA-Public Use
  Company Number: US-BAUSCH-BL-2018-023829

PATIENT
  Age: 75 Year
  Sex: Female
  Weight: 78.09 kg

DRUGS (1)
  1. XIFAXAN [Suspect]
     Active Substance: RIFAXIMIN
     Indication: HEPATIC ENCEPHALOPATHY
     Route: 048
     Dates: start: 20180104

REACTIONS (1)
  - Death [Fatal]

NARRATIVE: CASE EVENT DATE: 20180730
